FAERS Safety Report 19280611 (Version 1)
Quarter: 2021Q2

REPORT INFORMATION
  Report Type: Spontaneous
  Country: US (occurrence: US)
  Receive Date: 20210520
  Receipt Date: 20210520
  Transmission Date: 20210717
  Serious: No
  Sender: FDA-Public Use
  Company Number: US-BAUSCH-BL-2021-014414

PATIENT
  Sex: Male

DRUGS (1)
  1. JUBLIA [Suspect]
     Active Substance: EFINACONAZOLE
     Indication: FUNGAL INFECTION
     Route: 061
     Dates: start: 202008, end: 20210420

REACTIONS (3)
  - Product prescribing error [Unknown]
  - Product use issue [Unknown]
  - Nail discolouration [Unknown]

NARRATIVE: CASE EVENT DATE: 202104
